FAERS Safety Report 18422164 (Version 1)
Quarter: 2020Q4

REPORT INFORMATION
  Report Type: Spontaneous
  Country: US (occurrence: US)
  Receive Date: 20201023
  Receipt Date: 20201023
  Transmission Date: 20210114
  Serious: No
  Sender: FDA-Public Use
  Company Number: US-TEVA-2020-US-1841081

PATIENT
  Age: 71 Year
  Sex: Male

DRUGS (3)
  1. ALBUTEROL. [Suspect]
     Active Substance: ALBUTEROL
     Route: 055
  2. FLUTICASONE PROPIONATE/SALMETEROL [Suspect]
     Active Substance: FLUTICASONE PROPIONATE\SALMETEROL XINAFOATE
     Indication: ASTHMA
     Dosage: 2 PUFFS OF THE 113/14 MCG TWICE DAILY
     Route: 055
     Dates: start: 202005
  3. SINGULAIR [Concomitant]
     Active Substance: MONTELUKAST SODIUM
     Route: 065

REACTIONS (5)
  - Lipids abnormal [Unknown]
  - Off label use [Unknown]
  - Blood cholesterol increased [Unknown]
  - Argininosuccinate lyase decreased [Unknown]
  - Low density lipoprotein increased [Unknown]
